FAERS Safety Report 21457506 (Version 1)
Quarter: 2022Q4

REPORT INFORMATION
  Report Type: Spontaneous
  Country: US (occurrence: US)
  Receive Date: 20221014
  Receipt Date: 20221014
  Transmission Date: 20230113
  Serious: Yes (Hospitalization, Other)
  Sender: FDA-Public Use
  Company Number: US-Accord-279793

PATIENT
  Age: 17 Year
  Sex: Female

DRUGS (8)
  1. ETOPOSIDE [Suspect]
     Active Substance: ETOPOSIDE
     Indication: Ewing^s sarcoma
     Dosage: EVERY 2 WEEK, CUMULATIVE DOSE -2 CYCLICAL
  2. VINCRISTINE [Suspect]
     Active Substance: VINCRISTINE
     Indication: Ewing^s sarcoma
     Dosage: CUMULATIVE DOSE -2 CYCLICAL
  3. DOXORUBICIN [Suspect]
     Active Substance: DOXORUBICIN
     Indication: Ewing^s sarcoma
     Dosage: CUMULATIVE DOSE -2 CYCLICAL
  4. CYCLOPHOSPHAMIDE [Suspect]
     Active Substance: CYCLOPHOSPHAMIDE
     Indication: Ewing^s sarcoma
     Dosage: CUMULATIVE DOSE -2 CYCLICAL
  5. IFOSFAMIDE [Suspect]
     Active Substance: IFOSFAMIDE
     Indication: Ewing^s sarcoma
     Dosage: EVERY 2 WEEKS, CUMULATIVE DOSE -2 CYCLICAL
  6. FILGRASTIM [Concomitant]
     Active Substance: FILGRASTIM
     Dosage: DAILY
  7. IMIGLUCERASE [Concomitant]
     Active Substance: IMIGLUCERASE
     Indication: Gaucher^s disease
     Dosage: 3,200 UNITS/60 UNITS/KG BODY WEIGHT EVERY 14 DAYS)
  8. ELIGLUSTAT [Concomitant]
     Active Substance: ELIGLUSTAT
     Indication: Gaucher^s disease

REACTIONS (4)
  - Off label use [Unknown]
  - Thrombocytopenia [Recovering/Resolving]
  - Febrile neutropenia [Recovering/Resolving]
  - Pancytopenia [Recovering/Resolving]
